FAERS Safety Report 15618270 (Version 1)
Quarter: 2018Q4

REPORT INFORMATION
  Report Type: Spontaneous
  Country: FR (occurrence: FR)
  Receive Date: 20181114
  Receipt Date: 20181114
  Transmission Date: 20190205
  Serious: Yes (Death, Other)
  Sender: FDA-Public Use
  Company Number: FR-ALEXION PHARMACEUTICALS INC.-A201813046

PATIENT
  Age: 22 Year
  Sex: Male
  Weight: 74 kg

DRUGS (2)
  1. SOLIRIS [Suspect]
     Active Substance: ECULIZUMAB
     Indication: HEART TRANSPLANT REJECTION
     Dosage: 900 MG, SINGLE
     Route: 065
     Dates: start: 20180930, end: 20180930
  2. SOLIRIS [Suspect]
     Active Substance: ECULIZUMAB
     Indication: OFF LABEL USE

REACTIONS (3)
  - Off label use [Recovered/Resolved]
  - Pulmonary haemorrhage [Fatal]
  - Complication associated with device [Fatal]

NARRATIVE: CASE EVENT DATE: 2018
